FAERS Safety Report 5494434-4 (Version None)
Quarter: 2007Q4

REPORT INFORMATION
  Report Type: 
  Country: None (occurrence: None)
  Receive Date: 20071022
  Receipt Date: 20071022
  Transmission Date: 20080405
  Serious: No
  Sender: FDA-Public Use
  Company Number: None

PATIENT

DRUGS (1)
  1. HYPERCARE 20% STRATUS PHARMACEUTICALS [Suspect]
     Dosage: Q 3-5 DAYS TOP
     Route: 061
     Dates: start: 20060129, end: 20071018

REACTIONS (1)
  - PHARMACEUTICAL PRODUCT COMPLAINT [None]
